FAERS Safety Report 5393219-7 (Version None)
Quarter: 2007Q3

REPORT INFORMATION
  Report Type: 
  Country: None (occurrence: None)
  Receive Date: 20070718
  Receipt Date: 20061106
  Transmission Date: 20080115
  Serious: Yes (Hospitalization)
  Sender: FDA-Public Use
  Company Number: 2006071575

PATIENT
  Age: 72 Year
  Sex: Male

DRUGS (5)
  1. CELEBREX [Suspect]
     Dosage: 200 MG;
     Dates: start: 20020905, end: 20021026
  2. CARDIZEM [Concomitant]
  3. PLETAL (CILOSTAZOL) [Concomitant]
  4. NEXIUM [Concomitant]
  5. ULTRAM [Concomitant]

REACTIONS (1)
  - CEREBROVASCULAR ACCIDENT [None]
